FAERS Safety Report 6973314-9 (Version None)
Quarter: 2010Q3

REPORT INFORMATION
  Report Type: 
  Country: None (occurrence: None)
  Receive Date: 20100909
  Receipt Date: 20100828
  Transmission Date: 20110219
  Serious: Yes (Other)
  Sender: FDA-Public Use
  Company Number: US-PFIZER INC-2008006230

PATIENT
  Sex: Female
  Weight: 66.7 kg

DRUGS (13)
  1. LYRICA [Suspect]
     Indication: FIBROMYALGIA
     Dosage: 50 MG, 1X/DAY
     Dates: start: 20070101
  2. CHANTIX [Suspect]
     Indication: SMOKING CESSATION THERAPY
     Dosage: 0.5 MG, 1X/DAY
     Route: 048
     Dates: start: 20100510, end: 20100513
  3. LORTAB [Concomitant]
  4. VITAMIN B-12 [Concomitant]
     Indication: ASTHENIA
     Dosage: 500 MG, 1X/DAY
     Route: 048
  5. MAGNESIUM [Concomitant]
     Indication: RELAXATION THERAPY
     Dosage: UNK
  6. MAGNESIUM [Concomitant]
     Indication: SLEEP DISORDER
  7. MAGNESIUM [Concomitant]
     Indication: PAIN
  8. GLUCOSAMINE HYDROCHLORIDE/CHONDROITIN SULFATE [Concomitant]
     Indication: ARTHRALGIA
     Dosage: 1000/800
     Dates: start: 20100101
  9. GLUCOSAMINE HYDROCHLORIDE/CHONDROITIN SULFATE [Concomitant]
     Indication: ARTHRITIS
  10. FLAX SEED/HERBAL NOS/PSYLLIUM [Concomitant]
     Dosage: UNK
  11. ACETAMINOPHEN [Concomitant]
     Indication: PAIN
     Dosage: 325 MG, AS NEEDED
     Route: 048
  12. CLONAZEPAM [Concomitant]
     Dosage: 1 MG, UNK
  13. HYDROCODONE [Concomitant]
     Indication: ARTHRALGIA
     Dosage: UNK

REACTIONS (16)
  - ABDOMINAL DISCOMFORT [None]
  - BEDRIDDEN [None]
  - DIZZINESS [None]
  - FATIGUE [None]
  - HEADACHE [None]
  - HYPERHIDROSIS [None]
  - INSOMNIA [None]
  - MUSCLE SPASMS [None]
  - NAUSEA [None]
  - PAIN [None]
  - PRESYNCOPE [None]
  - SKIN DISORDER [None]
  - SOMNOLENCE [None]
  - SWELLING [None]
  - TREMOR [None]
  - VISION BLURRED [None]
